FAERS Safety Report 9870301 (Version 1)
Quarter: 2014Q1

REPORT INFORMATION
  Report Type: Spontaneous
  Country: US (occurrence: None)
  Receive Date: 20140203
  Receipt Date: 20140203
  Transmission Date: 20141002
  Serious: Yes (Death, Other)
  Sender: FDA-Public Use
  Company Number: 2014P1000520

PATIENT
  Sex: Male

DRUGS (1)
  1. XENADERM OINTMENT [Suspect]
     Indication: CELLULITIS

REACTIONS (4)
  - Chronic obstructive pulmonary disease [None]
  - Emphysema [None]
  - Arthritis [None]
  - Cardiac failure congestive [None]
